FAERS Safety Report 6167447-7 (Version None)
Quarter: 2009Q2

REPORT INFORMATION
  Report Type: 
  Country: None (occurrence: None)
  Receive Date: 20090424
  Receipt Date: 20090417
  Transmission Date: 20091009
  Serious: Yes (Other)
  Sender: FDA-Public Use
  Company Number: PHEH2008US02885

PATIENT
  Sex: Male

DRUGS (18)
  1. ZOMETA [Suspect]
     Indication: NEOPLASM MALIGNANT
     Dosage: UNK
  2. VELCADE [Concomitant]
  3. DEXAMETHASONE [Concomitant]
  4. REVLIMID [Concomitant]
  5. LIPITOR [Concomitant]
  6. ASPIRIN [Concomitant]
     Dosage: 81 MG, UNK
  7. OXYCONTIN [Concomitant]
     Dosage: 20 MG, UNK
  8. NEXIUM [Concomitant]
  9. QUINAPRIL [Concomitant]
     Dosage: UNK
  10. ATIVAN [Concomitant]
     Dosage: UNK
  11. DILAUDID [Concomitant]
     Dosage: UNK
  12. ACYCLOVIR [Concomitant]
     Dosage: UNK
  13. PREDNISONE [Concomitant]
     Dosage: 50 MG, UNK
  14. FLOMAX [Concomitant]
  15. AMBIEN [Concomitant]
     Dosage: UNK
  16. XALATAN [Concomitant]
  17. LYRICA [Concomitant]
     Dosage: 50 MG, TID
  18. MELPHALAN [Concomitant]

REACTIONS (21)
  - ACTIVITIES OF DAILY LIVING IMPAIRED [None]
  - ANAEMIA [None]
  - ANXIETY [None]
  - BACK PAIN [None]
  - DYSPNOEA [None]
  - EMOTIONAL DISTRESS [None]
  - EXOSTOSIS [None]
  - FEBRILE NEUTROPENIA [None]
  - GAIT DISTURBANCE [None]
  - GLOSSODYNIA [None]
  - HYPOAESTHESIA [None]
  - INJURY [None]
  - LIFE EXPECTANCY SHORTENED [None]
  - LUMBAR SPINAL STENOSIS [None]
  - MASTICATION DISORDER [None]
  - NEUROPATHY PERIPHERAL [None]
  - OSTEONECROSIS [None]
  - PAIN [None]
  - SCAR [None]
  - SPINAL OSTEOARTHRITIS [None]
  - WEIGHT INCREASED [None]
